FAERS Safety Report 4958932-1 (Version None)
Quarter: 2006Q1

REPORT INFORMATION
  Report Type: 
  Country: None (occurrence: None)
  Receive Date: 20060324
  Receipt Date: 20060316
  Transmission Date: 20060701
  Serious: Yes (Disabling)
  Sender: FDA-Public Use
  Company Number: HQWYE378517MAR06

PATIENT
  Age: 83 Year
  Sex: Male

DRUGS (7)
  1. PANTOPRAZOLE SODIUM [Suspect]
     Indication: HELICOBACTER INFECTION
     Dosage: 40 MG 1X PER 1 DAY, ORAL
     Route: 048
     Dates: start: 20031125, end: 20031101
  2. PANTOPRAZOLE SODIUM [Suspect]
     Indication: HELICOBACTER INFECTION
     Dosage: 40 MG 1X PER 1 DAY, ORAL
     Route: 048
     Dates: start: 20031129, end: 20031202
  3. BIAXIN [Suspect]
     Indication: HELICOBACTER INFECTION
     Dosage: 250 MG 2X PER 1 DAY, ORAL
     Route: 048
     Dates: start: 20031125, end: 20031101
  4. BIAXIN [Suspect]
     Indication: HELICOBACTER INFECTION
     Dosage: 250 MG 2X PER 1 DAY, ORAL
     Route: 048
     Dates: start: 20031129, end: 20031202
  5. FLAGYL [Suspect]
     Indication: HELICOBACTER INFECTION
     Dosage: 250 MG 2X PER 1 DAY, ORAL
     Route: 048
     Dates: start: 20031125, end: 20031101
  6. FLAGYL [Suspect]
     Indication: HELICOBACTER INFECTION
     Dosage: 250 MG 2X PER 1 DAY, ORAL
     Route: 048
     Dates: start: 20031129, end: 20031202
  7. SYNTHROOID [Concomitant]

REACTIONS (3)
  - BRADYCARDIA [None]
  - CHEST PAIN [None]
  - CHILLS [None]
